FAERS Safety Report 7225499-7 (Version None)
Quarter: 2011Q1

REPORT INFORMATION
  Report Type: 
  Country: None (occurrence: None)
  Receive Date: 20110113
  Receipt Date: 20110107
  Transmission Date: 20110831
  Serious: Yes (Death)
  Sender: FDA-Public Use
  Company Number: US-MERCK-1101USA00881

PATIENT
  Age: 62 Year
  Sex: Male

DRUGS (10)
  1. QUETIAPINE FUMARATE [Suspect]
     Route: 065
  2. FLUOXETINE [Suspect]
     Route: 065
  3. BUSPIRONE HYDROCHLORIDE [Suspect]
     Route: 065
  4. DIAZEPAM [Suspect]
     Route: 065
  5. ZOCOR [Suspect]
     Route: 048
  6. TRAMADOL HYDROCHLORIDE [Suspect]
     Route: 065
  7. VENLAFAXINE HYDROCHLORIDE [Suspect]
     Route: 065
  8. METHADONE HCL [Suspect]
     Route: 065
  9. ALBUTEROL [Suspect]
     Route: 065
  10. ZOLPIDEM TARTRATE [Suspect]
     Route: 065

REACTIONS (3)
  - CARDIAC ARREST [None]
  - ADVERSE EVENT [None]
  - RESPIRATORY ARREST [None]
